FAERS Safety Report 25255788 (Version 1)
Quarter: 2025Q2

REPORT INFORMATION
  Report Type: Report from Study
  Country: BR (occurrence: BR)
  Receive Date: 20250430
  Receipt Date: 20250430
  Transmission Date: 20250716
  Serious: Yes (Other)
  Sender: ABBVIE
  Company Number: BR-ABBVIE-6253337

PATIENT
  Age: 57 Year
  Sex: Female
  Weight: 60 kg

DRUGS (1)
  1. SKYRIZI [Suspect]
     Active Substance: RISANKIZUMAB-RZAA
     Indication: Psoriasis
     Dosage: FORM STRENGTH: SYRINGE 75MG/0.83ML, 2 SYRINGES
     Route: 058

REACTIONS (16)
  - Suicide attempt [Unknown]
  - Glaucoma [Not Recovered/Not Resolved]
  - Blood pressure increased [Recovered/Resolved]
  - Memory impairment [Not Recovered/Not Resolved]
  - Nervousness [Unknown]
  - Stress [Unknown]
  - Psoriasis [Not Recovered/Not Resolved]
  - Osteoporosis [Not Recovered/Not Resolved]
  - Alopecia [Unknown]
  - Traumatic intracranial haemorrhage [Unknown]
  - Feeling of despair [Unknown]
  - Blood pressure increased [Recovered/Resolved]
  - Blood pressure increased [Recovered/Resolved]
  - Abdominal distension [Unknown]
  - Visual impairment [Not Recovered/Not Resolved]
  - Dizziness [Not Recovered/Not Resolved]

NARRATIVE: CASE EVENT DATE: 20230101
